FAERS Safety Report 9328718 (Version 2)
Quarter: 2014Q1

REPORT INFORMATION
  Report Type: Spontaneous
  Country: US (occurrence: None)
  Receive Date: 20130531
  Receipt Date: 20140306
  Transmission Date: 20141002
  Serious: Yes (Other)
  Sender: FDA-Public Use
  Company Number: JPI-P-032180

PATIENT
  Age: 41 Year
  Sex: Female
  Weight: 93.9 kg

DRUGS (7)
  1. XYREM (500 MILLIGRAM/MILLILITERS, SOLUTION) (SODIUM OXYBATE) [Suspect]
     Indication: NARCOLEPSY
     Route: 048
     Dates: start: 201101
  2. XYREM (500 MILLIGRAM/MILLILITERS, SOLUTION) (SODIUM OXYBATE) [Suspect]
     Indication: CATAPLEXY
     Route: 048
     Dates: start: 201101
  3. VIMPAT (LACOSAMIDE) [Concomitant]
  4. DEXILANT (DEXLANSOPRAZOLE) [Concomitant]
  5. ZOLOFT (SERTRALINE HYDROCHLORIDE) [Concomitant]
  6. RESTASIS (CICLOSPORIN) [Concomitant]
  7. TOPIRAMATE (TOPIRAMATE) [Concomitant]

REACTIONS (6)
  - Hepatic enzyme increased [None]
  - Cholecystectomy [None]
  - Gastric disorder [None]
  - Weight decreased [None]
  - Abdominal discomfort [None]
  - Vomiting [None]
